FAERS Safety Report 4902244-9 (Version None)
Quarter: 2006Q1

REPORT INFORMATION
  Report Type: 
  Country: None (occurrence: None)
  Receive Date: 20060202
  Receipt Date: 20060120
  Transmission Date: 20060701
  Serious: Yes (Other)
  Sender: FDA-Public Use
  Company Number: 2006012099

PATIENT
  Sex: Female

DRUGS (15)
  1. CELEBREX [Suspect]
     Indication: FIBROMYALGIA
  2. NEURONTIN [Suspect]
     Indication: FIBROMYALGIA
     Dates: start: 20010101
  3. LYRICA [Suspect]
     Indication: FIBROMYALGIA
     Dosage: 50 MG (25 MG, 2 IN 1 D)
  4. ALL OTHER THEARPEUTIC PRODUCTS (ALL OTHER THERAPEUTIC PRODUCTS) [Concomitant]
  5. EFFEXOR [Concomitant]
  6. DIAZEPAM [Concomitant]
  7. HYDROCODONE BITARTRATE [Concomitant]
  8. CARDIZEM [Concomitant]
  9. TOPROL-XL [Concomitant]
  10. NORTRIPTYLINE HCL [Concomitant]
  11. HYDROCHLOROTHIAZIDE [Concomitant]
  12. ZETIA [Concomitant]
  13. PREVACID [Concomitant]
  14. PROVIGIL [Concomitant]
  15. PREMPRO [Concomitant]

REACTIONS (21)
  - ABASIA [None]
  - ACCIDENT [None]
  - BACK PAIN [None]
  - CLOSTRIDIAL INFECTION [None]
  - CONDITION AGGRAVATED [None]
  - DEPRESSION [None]
  - DRUG INEFFECTIVE [None]
  - FALL [None]
  - FIBROMYALGIA [None]
  - GASTRITIS [None]
  - HEAD INJURY [None]
  - HYPERPHAGIA [None]
  - INTERVERTEBRAL DISC INJURY [None]
  - LYMPHADENOPATHY [None]
  - NAUSEA [None]
  - NEURALGIA [None]
  - OEDEMA [None]
  - RADICULAR PAIN [None]
  - SCIATICA [None]
  - VISION BLURRED [None]
  - WEIGHT INCREASED [None]
